FAERS Safety Report 4634245-2 (Version None)
Quarter: 2005Q2

REPORT INFORMATION
  Report Type: 
  Country: None (occurrence: None)
  Receive Date: 20050413
  Receipt Date: 20031125
  Transmission Date: 20051028
  Serious: Yes (Death)
  Sender: FDA-Public Use
  Company Number: PHFR2003GB05107

PATIENT
  Sex: Female

DRUGS (1)
  1. LESCOL [Suspect]
     Route: 048

REACTIONS (1)
  - ALVEOLITIS ALLERGIC [None]
